FAERS Safety Report 12225198 (Version 1)
Quarter: 2016Q1

REPORT INFORMATION
  Report Type: Spontaneous
  Country: IT (occurrence: IT)
  Receive Date: 20160331
  Receipt Date: 20160331
  Transmission Date: 20160526
  Serious: Yes (Other)
  Sender: FDA-Public Use
  Company Number: IT-WATSON-2016-06787

PATIENT
  Age: 71 Year
  Sex: Female

DRUGS (2)
  1. CARBOPLATIN. [Suspect]
     Active Substance: CARBOPLATIN
     Indication: LUNG ADENOCARCINOMA METASTATIC
     Dosage: 370 MG, CYCLICAL
     Route: 042
     Dates: start: 20150410, end: 20150710
  2. PEMETREXED (UNKNOWN) [Suspect]
     Active Substance: PEMETREXED
     Indication: LUNG ADENOCARCINOMA METASTATIC
     Dosage: 690 MG, CYCLICAL
     Route: 042
     Dates: start: 20150409

REACTIONS (2)
  - Neutropenia [Recovered/Resolved]
  - Thrombocytopenia [Recovered/Resolved]

NARRATIVE: CASE EVENT DATE: 20150730
